FAERS Safety Report 4669323-5 (Version None)
Quarter: 2005Q2

REPORT INFORMATION
  Report Type: 
  Country: None (occurrence: None)
  Receive Date: 20050519
  Receipt Date: 20050509
  Transmission Date: 20051028
  Serious: Yes (Hospitalization)
  Sender: FDA-Public Use
  Company Number: 2005073101

PATIENT
  Sex: Male

DRUGS (3)
  1. IRINOTECAN HCL [Suspect]
     Indication: ILL-DEFINED DISORDER
  2. BENDROFLUMETHIAZIDE (BENDROFLUMETHIAZIDE) [Suspect]
     Indication: ILL-DEFINED DISORDER
  3. CETUXIMAB (CETUXIMAB) [Suspect]
     Indication: COLORECTAL CANCER METASTATIC
     Dosage: 2 MG/ML, INTRAVENOUS
     Route: 042

REACTIONS (3)
  - CONVULSION [None]
  - HYPOKALAEMIA [None]
  - HYPOMAGNESAEMIA [None]
